FAERS Safety Report 5708264-9 (Version None)
Quarter: 2008Q2

REPORT INFORMATION
  Report Type: 
  Country: None (occurrence: None)
  Receive Date: 20080414
  Receipt Date: 20080401
  Transmission Date: 20081010
  Serious: Yes (Life-Threatening, Hospitalization, Disabling)
  Sender: FDA-Public Use
  Company Number: DSU-2008-00473

PATIENT
  Age: 85 Year
  Sex: Male
  Weight: 62 kg

DRUGS (1)
  1. OLMESARTAN (OLMESARTAN MEDOXOMIL) (20 MILLIGRAM, TABLET) (OLMESARTAN M [Suspect]
     Indication: HYPERTENSION
     Dosage: 20 MG (20 MG, QD), PER ORAL
     Route: 048
     Dates: start: 20070605, end: 20080201

REACTIONS (5)
  - ABASIA [None]
  - BACK PAIN [None]
  - HYPOREFLEXIA [None]
  - MYALGIA [None]
  - TREMOR [None]
